FAERS Safety Report 7954400-3 (Version None)
Quarter: 2011Q4

REPORT INFORMATION
  Report Type: 
  Country: None (occurrence: None)
  Receive Date: 20111202
  Receipt Date: 20111017
  Transmission Date: 20120403
  Serious: Yes (Other)
  Sender: FDA-Public Use
  Company Number: CA-GLAXOSMITHKLINE-A0949376A

PATIENT
  Sex: Female

DRUGS (12)
  1. JANUVIA [Concomitant]
  2. XELODA [Suspect]
     Indication: PRODUCT USED FOR UNKNOWN INDICATION
     Dosage: 1500MG TWICE PER DAY
     Route: 065
     Dates: end: 20110901
  3. SYNTHROID [Concomitant]
  4. CLONAZEPAM [Concomitant]
  5. CRESTOR [Concomitant]
  6. TYKERB [Suspect]
     Indication: BREAST CANCER METASTATIC
     Dosage: 1250MG PER DAY
     Route: 048
     Dates: start: 20110404, end: 20110901
  7. BLOOD PRESSURE MEDICATION [Suspect]
     Indication: PRODUCT USED FOR UNKNOWN INDICATION
     Route: 065
  8. PAXIL [Concomitant]
  9. PANTOPRAZOLE [Concomitant]
  10. DIAMICRON [Concomitant]
  11. ZYLOPRIM [Concomitant]
  12. WELLBUTRIN [Concomitant]

REACTIONS (3)
  - DIZZINESS POSTURAL [None]
  - SYNCOPE [None]
  - BURNS SECOND DEGREE [None]
